FAERS Safety Report 8382587 (Version 2)
Quarter: 2015Q1

REPORT INFORMATION
  Report Type: Report from Study
  Country: US (occurrence: US)
  Receive Date: 20120201
  Receipt Date: 20150303
  Transmission Date: 20150721
  Serious: Yes (Death)
  Sender: FDA-Public Use
  Company Number: US-ROCHE-1035154

PATIENT
  Sex: Female

DRUGS (15)
  1. AVASTIN [Suspect]
     Active Substance: BEVACIZUMAB
     Indication: BREAST CANCER FEMALE
     Route: 042
  2. SULFAMETHOXAZOLE/TRIMETHOPRIM [Suspect]
     Active Substance: SULFAMETHOXAZOLE\TRIMETHOPRIM
     Indication: PRODUCT USED FOR UNKNOWN INDICATION
     Route: 065
  3. PEPCID [Concomitant]
     Active Substance: FAMOTIDINE
     Route: 065
  4. ALOXI [Concomitant]
     Active Substance: PALONOSETRON HYDROCHLORIDE
     Route: 042
  5. NAVELBINE [Concomitant]
     Active Substance: VINORELBINE TARTRATE
  6. TAXOTERE [Concomitant]
     Active Substance: DOCETAXEL
     Route: 065
  7. NEUPOGEN [Concomitant]
     Active Substance: FILGRASTIM
     Route: 065
  8. PHENERGAN [Concomitant]
     Active Substance: PROMETHAZINE HYDROCHLORIDE
     Route: 042
  9. ABRAXANE [Suspect]
     Active Substance: PACLITAXEL
     Indication: PRODUCT USED FOR UNKNOWN INDICATION
     Route: 065
  10. TAXOL [Concomitant]
     Active Substance: PACLITAXEL
  11. TAGAMET [Concomitant]
     Active Substance: CIMETIDINE
  12. HEXADROL [Concomitant]
     Active Substance: DEXAMETHASONE
     Route: 042
  13. XELODA [Suspect]
     Active Substance: CAPECITABINE
     Indication: BREAST CANCER FEMALE
     Route: 065
  14. AREDIA [Concomitant]
     Active Substance: PAMIDRONATE DISODIUM
     Route: 065
  15. ZOMETA [Concomitant]
     Active Substance: ZOLEDRONIC ACID

REACTIONS (22)
  - Death [Fatal]
  - Proteinuria [Unknown]
  - Diarrhoea [Unknown]
  - Vision blurred [Unknown]
  - Dizziness [Unknown]
  - Balance disorder [Unknown]
  - Dyspepsia [Unknown]
  - Neuropathy peripheral [Unknown]
  - Increased tendency to bruise [Unknown]
  - Asthenia [Unknown]
  - Off label use [Unknown]
  - Neoplasm progression [Unknown]
  - Musculoskeletal discomfort [Unknown]
  - Blood pressure fluctuation [Unknown]
  - Ecchymosis [Unknown]
  - Metastases to lung [Unknown]
  - Bone pain [Unknown]
  - Paranasal sinus hypersecretion [Unknown]
  - Hypersensitivity [Unknown]
  - Headache [Unknown]
  - Erythema [Unknown]
  - Gastroenteritis viral [Unknown]
